FAERS Safety Report 15978568 (Version 9)
Quarter: 2021Q4

REPORT INFORMATION
  Report Type: Spontaneous
  Country: CA (occurrence: CA)
  Receive Date: 20190219
  Receipt Date: 20211206
  Transmission Date: 20220303
  Serious: Yes (Hospitalization, Other)
  Sender: FDA-Public Use
  Company Number: CA-009507513-1902CAN006256

PATIENT
  Age: 61 Year
  Sex: Female
  Weight: 84 kg

DRUGS (65)
  1. EMEND [Suspect]
     Active Substance: APREPITANT
     Indication: Supportive care
     Dosage: 80.0 MILLIGRAM, 1 EVERY 1 DAY
     Route: 048
  2. EMEND [Suspect]
     Active Substance: APREPITANT
     Dosage: 125.0 MILLIGRAM
     Route: 048
  3. EMEND [Suspect]
     Active Substance: APREPITANT
     Dosage: 800 MILLIGRAM, 1 EVERY 1 DAY
     Route: 048
  4. EMEND [Suspect]
     Active Substance: APREPITANT
     Dosage: 125.0 MILLIGRAM, CYCLICAL
     Route: 048
  5. EMEND [Suspect]
     Active Substance: APREPITANT
     Dosage: 80.0 MILLIGRAM, 1 EVERY 1 DAY
     Route: 048
  6. EMEND [Suspect]
     Active Substance: APREPITANT
     Dosage: 125.0 MILLIGRAM
     Route: 048
  7. EMEND [Suspect]
     Active Substance: APREPITANT
     Dosage: 125.0 MILLIGRAM
     Route: 048
  8. EMEND [Suspect]
     Active Substance: APREPITANT
     Dosage: 80.0 MILLIGRAM, 1 EVERY 1 DAY
     Route: 048
  9. EMEND [Suspect]
     Active Substance: APREPITANT
     Dosage: 80.0 MILLIGRAM, 1 EVERY 1 DAY
     Route: 048
  10. EMEND [Suspect]
     Active Substance: APREPITANT
     Dosage: 125.0 MILLIGRAM
     Route: 048
  11. EMEND [Suspect]
     Active Substance: APREPITANT
     Dosage: 125 MILLIGRAM, CYCLIC, QOD
  12. DOXORUBICIN HYDROCHLORIDE [Suspect]
     Active Substance: DOXORUBICIN HYDROCHLORIDE
     Indication: Breast cancer
     Dosage: 1 EVERY 14 DAYS/ 1 EVERY 2 WEEK
     Route: 042
     Dates: start: 20170109
  13. DOXORUBICIN HYDROCHLORIDE [Suspect]
     Active Substance: DOXORUBICIN HYDROCHLORIDE
     Indication: Product used for unknown indication
     Dosage: 1 EVERY 14 DAYS/ 1 EVERY 2 WEEK
     Route: 042
  14. DOXORUBICIN HYDROCHLORIDE [Suspect]
     Active Substance: DOXORUBICIN HYDROCHLORIDE
     Dosage: 1 EVERY 14 DAYS/ 1 EVERY 2 WEEK
     Route: 042
  15. DOXORUBICIN HYDROCHLORIDE [Suspect]
     Active Substance: DOXORUBICIN HYDROCHLORIDE
     Dosage: 1 EVERY 14 DAYS/ 1 EVERY 2 WEEK
     Route: 042
  16. DOXORUBICIN HYDROCHLORIDE [Suspect]
     Active Substance: DOXORUBICIN HYDROCHLORIDE
     Dosage: CYCLICAL
     Route: 042
  17. LEVAQUIN [Suspect]
     Active Substance: LEVOFLOXACIN
     Indication: Adverse event
     Dosage: 500 MILLIGRAM, 1 EVERY 1 DAYS; FORMULATION: NOT SPECIFIED
     Route: 048
     Dates: start: 20170307
  18. METOCLOPRAMIDE [Suspect]
     Active Substance: METOCLOPRAMIDE
     Indication: Product used for unknown indication
     Dosage: 10.0 MILLIGRAM, 1 EVERY 1 DAYS; FORMULATION: NOT SPECIFIED
     Route: 048
     Dates: start: 20170221
  19. ONDANSETRON [Suspect]
     Active Substance: ONDANSETRON
     Indication: Supportive care
     Dosage: 8.0 MILLIGRAM; FORMULATION: NOT SPECIFIED
     Route: 048
  20. ONDANSETRON [Suspect]
     Active Substance: ONDANSETRON
     Dosage: 8.0 MILLIGRAM
     Route: 048
  21. ONDANSETRON [Suspect]
     Active Substance: ONDANSETRON
     Dosage: 8.0 MILLIGRAM
     Route: 048
  22. ONDANSETRON [Suspect]
     Active Substance: ONDANSETRON
     Dosage: 8.0 MILLIGRAM
     Route: 048
  23. ONDANSETRON [Suspect]
     Active Substance: ONDANSETRON
     Dosage: 8.0 MILLIGRAM
     Route: 048
  24. ONDANSETRON [Suspect]
     Active Substance: ONDANSETRON
     Dosage: 8.0 MILLIGRAM
     Route: 048
  25. ONDANSETRON [Suspect]
     Active Substance: ONDANSETRON
     Dosage: 8.0 MILLIGRAM
     Route: 048
  26. ONDANSETRON [Suspect]
     Active Substance: ONDANSETRON
     Dosage: 8.0 MILLIGRAM
     Route: 048
  27. PANTOPRAZOLE [Suspect]
     Active Substance: PANTOPRAZOLE
     Indication: Product used for unknown indication
     Dosage: 40.0 MILLIGRAM, 1 EVERY 1 DAYS; FORMULATION: NOT SPECIFIED
     Route: 048
     Dates: start: 20170201
  28. PEGFILGRASTIM [Suspect]
     Active Substance: PEGFILGRASTIM
     Indication: Supportive care
     Dosage: 6.0 MILLIGRAM
     Route: 058
     Dates: start: 20170111
  29. PEGFILGRASTIM [Suspect]
     Active Substance: PEGFILGRASTIM
     Dosage: 6.0 MILLIGRAM
     Route: 058
  30. PEGFILGRASTIM [Suspect]
     Active Substance: PEGFILGRASTIM
     Dosage: 6.0 MILLIGRAM
     Route: 058
  31. PEGFILGRASTIM [Suspect]
     Active Substance: PEGFILGRASTIM
     Dosage: 6.0 MILLIGRAM
     Route: 058
  32. PEGFILGRASTIM [Suspect]
     Active Substance: PEGFILGRASTIM
     Dosage: 6.0 MILLIGRAM
     Route: 058
  33. PEGFILGRASTIM [Suspect]
     Active Substance: PEGFILGRASTIM
     Dosage: 6.0 MILLIGRAM
     Route: 058
  34. PEGFILGRASTIM [Suspect]
     Active Substance: PEGFILGRASTIM
     Dosage: 6.0 MILLIGRAM
     Route: 058
  35. PREDNISONE [Suspect]
     Active Substance: PREDNISONE
     Indication: Adverse event
     Dosage: 30 MILLIGRAM, 1 EVERY 1 DAY(S); FORMULATION: NOT SPECIFIED
     Route: 065
  36. PREDNISONE [Suspect]
     Active Substance: PREDNISONE
     Indication: Product used for unknown indication
     Dosage: 40 MILLIGRAM, 1 EVERY 1 DAY(S); FORMULATION: NOT SPECIFIED
     Route: 065
     Dates: start: 20170307
  37. CYCLOPHOSPHAMIDE [Suspect]
     Active Substance: CYCLOPHOSPHAMIDE
     Indication: Breast cancer
     Dosage: 1210.0 MILLIGRAM, 1 EVERY 14 DAY(S)/ 1 EVERY 2 WEEKS
     Route: 042
     Dates: start: 20170109, end: 20170109
  38. CYCLOPHOSPHAMIDE [Suspect]
     Active Substance: CYCLOPHOSPHAMIDE
     Dosage: 1210.0 MILLIGRAM, 1 EVERY 14 DAY(S)/ 1 EVERY 2 WEEKS
     Route: 042
  39. CYCLOPHOSPHAMIDE [Suspect]
     Active Substance: CYCLOPHOSPHAMIDE
     Dosage: 1210.0 MILLIGRAM, 1 EVERY 14 DAY(S)/ 1 EVERY 2 WEEKS
     Route: 042
  40. CYCLOPHOSPHAMIDE [Suspect]
     Active Substance: CYCLOPHOSPHAMIDE
     Dosage: 1210.0 MILLIGRAM, 1 EVERY 14 DAY(S)/ 1 EVERY 2 WEEKS
     Route: 042
  41. CYCLOPHOSPHAMIDE [Suspect]
     Active Substance: CYCLOPHOSPHAMIDE
     Dosage: DOSE: 1210.0 MILLIGRAM, FREQUENCY: CYCLICAL
     Route: 042
  42. TAMIFLU [Suspect]
     Active Substance: OSELTAMIVIR PHOSPHATE
     Indication: Adverse event
     Dosage: 75.0 MILLIGRAM,  2 EVERY 1 DAY(S), FORMULATION: NOT SPECIFIED
     Route: 065
     Dates: start: 20170307
  43. TAMIFLU [Suspect]
     Active Substance: OSELTAMIVIR PHOSPHATE
     Indication: Product used for unknown indication
  44. TRASTUZUMAB [Suspect]
     Active Substance: TRASTUZUMAB
     Indication: Breast cancer
     Dosage: UNK
     Route: 065
  45. ACETAMINOPHEN [Concomitant]
     Active Substance: ACETAMINOPHEN
     Indication: Product used for unknown indication
     Dosage: DOSE: 1300.0 MILLIGRAM, 1 EVERY 1 (AS REQUIRED)
     Route: 048
  46. ACETAMINOPHEN [Concomitant]
     Active Substance: ACETAMINOPHEN
     Dosage: DOSE: 1300.0 MILLIGRAM, 1 EVERY 1 (AS REQUIRED)
     Route: 065
  47. CITALOPRAM [Concomitant]
     Active Substance: CITALOPRAM HYDROBROMIDE
     Indication: Product used for unknown indication
     Dosage: 20 MILLIGRAM, 1 EVERY 1 DAYS
     Route: 048
  48. DEXAMETHASONE [Concomitant]
     Active Substance: DEXAMETHASONE
     Indication: Supportive care
     Dosage: 20.0 MILLIGRAM, 1 EVERY 1 DAY
     Route: 048
  49. DEXAMETHASONE [Concomitant]
     Active Substance: DEXAMETHASONE
     Dosage: UNK
  50. DEXAMETHASONE [Concomitant]
     Active Substance: DEXAMETHASONE
     Dosage: UNK
  51. DEXAMETHASONE [Concomitant]
     Active Substance: DEXAMETHASONE
     Dosage: UNK
  52. GABAPENTIN [Concomitant]
     Active Substance: GABAPENTIN
     Indication: Product used for unknown indication
     Dosage: FREQUENCY: AS REQUIRED
     Route: 048
  53. GABAPENTIN [Concomitant]
     Active Substance: GABAPENTIN
     Dosage: UNK
     Route: 048
  54. GABAPENTIN [Concomitant]
     Active Substance: GABAPENTIN
     Dosage: UNK
  55. HYDROMORPHONE [Concomitant]
     Active Substance: HYDROMORPHONE
     Indication: Product used for unknown indication
     Dosage: 2.0 MILLIGRAM, FREQUENCY: AS REQUIRED
     Route: 048
     Dates: start: 20170424
  56. HYDROMORPHONE [Concomitant]
     Active Substance: HYDROMORPHONE
     Dosage: FORMULATION: NOT SPECIFIED
  57. HYDROMORPHONE [Concomitant]
     Active Substance: HYDROMORPHONE
     Dosage: 2.0 MILLIGRAM
     Route: 048
  58. NAPROXEN [Concomitant]
     Active Substance: NAPROXEN
     Indication: Product used for unknown indication
     Dosage: 220.0 MILLIGRAM, AS REQUIRED
     Route: 048
  59. NAPROXEN [Concomitant]
     Active Substance: NAPROXEN
     Dosage: 220.0 MILLIGRAM
     Route: 048
  60. NAPROXEN [Concomitant]
     Active Substance: NAPROXEN
     Dosage: FORMULATION: NOT SPECIFIED
  61. NAPROXEN [Concomitant]
     Active Substance: NAPROXEN
     Dosage: 220.0 MILLIGRAM
     Route: 065
  62. PACLITAXEL [Concomitant]
     Active Substance: PACLITAXEL
     Indication: Breast cancer
     Dosage: UNK
     Route: 065
     Dates: start: 20170327
  63. PACLITAXEL [Concomitant]
     Active Substance: PACLITAXEL
     Dosage: FORMULATION: LIQUID INTRAVENOUS
     Route: 065
  64. PACLITAXEL [Concomitant]
     Active Substance: PACLITAXEL
     Dosage: UNK
     Route: 042
  65. VITAMIN D NOS [Concomitant]
     Active Substance: VITAMIN D NOS
     Dosage: 2000.0 INTERNATIONAL UNIT, 1 EVERY 1 DAYS
     Route: 048

REACTIONS (8)
  - Atelectasis [Recovered/Resolved]
  - Gastrointestinal disorder [Recovered/Resolved]
  - Respiratory syncytial virus infection [Recovered/Resolved]
  - Respiratory failure [Recovered/Resolved]
  - Asthenia [Recovered/Resolved]
  - Decreased appetite [Recovered/Resolved]
  - Dyspnoea [Recovered/Resolved]
  - Nausea [Recovered/Resolved]

NARRATIVE: CASE EVENT DATE: 20170221
